FAERS Safety Report 21934145 (Version 2)
Quarter: 2024Q2

REPORT INFORMATION
  Report Type: Report from Study
  Country: US (occurrence: US)
  Receive Date: 20230201
  Receipt Date: 20240618
  Transmission Date: 20240716
  Serious: Yes (Hospitalization)
  Sender: FDA-Public Use
  Company Number: US-ABBVIE-4290705

PATIENT
  Age: 42 Year
  Sex: Male

DRUGS (1)
  1. HUMIRA [Suspect]
     Active Substance: ADALIMUMAB
     Indication: Psoriatic arthropathy
     Dosage: FORM STRENGTH: 40MG?CITRATE FREE
     Route: 058
     Dates: start: 20221014, end: 20221125

REACTIONS (4)
  - Gait inability [Recovering/Resolving]
  - Aphasia [Recovering/Resolving]
  - Dysarthria [Recovering/Resolving]
  - Pseudostroke [Unknown]

NARRATIVE: CASE EVENT DATE: 20221125
